FAERS Safety Report 24648824 (Version 1)
Quarter: 2024Q4

REPORT INFORMATION
  Report Type: Spontaneous
  Country: FR (occurrence: FR)
  Receive Date: 20241121
  Receipt Date: 20241121
  Transmission Date: 20250114
  Serious: Yes (Other)
  Sender: FRESENIUS KABI
  Company Number: None

PATIENT
  Age: 81 Year
  Sex: Female
  Weight: 74 kg

DRUGS (2)
  1. CARBOPLATIN [Suspect]
     Active Substance: CARBOPLATIN
     Indication: Ovarian epithelial cancer
     Dosage: ROUTE OF ADMIN: INTRAVENOUS
     Dates: start: 20240308, end: 20240726
  2. PACLITAXEL [Suspect]
     Active Substance: PACLITAXEL
     Indication: Ovarian epithelial cancer
     Dosage: ROUTE OF ADMIN: INTRAVENOUS
     Dates: start: 20240308, end: 20240726

REACTIONS (1)
  - Hypokalaemia [Unknown]
